FAERS Safety Report 24568222 (Version 1)
Quarter: 2024Q4

REPORT INFORMATION
  Report Type: Spontaneous
  Country: DE (occurrence: DE)
  Receive Date: 20241031
  Receipt Date: 20241031
  Transmission Date: 20250115
  Serious: Yes (Death, Other)
  Sender: BAXTER
  Company Number: DE-DCGMA-24204074

PATIENT
  Age: 28 Year
  Sex: Male
  Weight: 125 kg

DRUGS (2)
  1. PROPOFOL [Suspect]
     Active Substance: PROPOFOL
     Dosage: (DOSAGE TEXT: 2-6 MG/KG/H)
     Route: 042
  2. ISOFLURANE [Suspect]
     Active Substance: ISOFLURANE
     Indication: Sedation
     Dosage: (DOSAGE TEXT: ADMINISTRATION [INH], DOSAGE MAC 0.5)
     Route: 065

REACTIONS (10)
  - Rhabdomyolysis [Fatal]
  - Hypercapnia [Fatal]
  - Hyperkalaemia [Fatal]
  - Blood creatine phosphokinase increased [Fatal]
  - Blood creatine phosphokinase MB increased [Fatal]
  - Myoglobin blood increased [Fatal]
  - Troponin T increased [Fatal]
  - Blood lactate dehydrogenase increased [Fatal]
  - Aspartate aminotransferase increased [Fatal]
  - Hyperthermia malignant [Fatal]

NARRATIVE: CASE EVENT DATE: 20240926
